FAERS Safety Report 8454357-5 (Version None)
Quarter: 2012Q2

REPORT INFORMATION
  Report Type: 
  Country: None (occurrence: None)
  Receive Date: 20120621
  Receipt Date: 20120430
  Transmission Date: 20120825
  Serious: No
  Sender: FDA-Public Use
  Company Number: US-ALLERGAN-1206037US

PATIENT
  Age: 87 Year
  Sex: Male

DRUGS (2)
  1. LUMIGAN [Suspect]
     Indication: PRODUCT USED FOR UNKNOWN INDICATION
     Route: 047
  2. LUMIGAN [Suspect]
     Route: 047

REACTIONS (1)
  - EYE IRRITATION [None]
